FAERS Safety Report 6534587-X (Version None)
Quarter: 2010Q1

REPORT INFORMATION
  Report Type: 
  Country: None (occurrence: None)
  Receive Date: 20100112
  Receipt Date: 20100107
  Transmission Date: 20100710
  Serious: Yes (Hospitalization)
  Sender: FDA-Public Use
  Company Number: A0838325A

PATIENT
  Age: 50 Year
  Sex: Female

DRUGS (3)
  1. LAMICTAL [Suspect]
     Indication: BIPOLAR DISORDER
     Dosage: 9600MG SINGLE DOSE
     Route: 048
  2. ZOLOFT [Concomitant]
  3. AMBIEN [Concomitant]

REACTIONS (4)
  - HYPERHIDROSIS [None]
  - INTENTIONAL OVERDOSE [None]
  - SLEEP DISORDER [None]
  - SUICIDE ATTEMPT [None]
